FAERS Safety Report 19240614 (Version 1)
Quarter: 2021Q2

REPORT INFORMATION
  Report Type: Report from Study
  Country: US (occurrence: US)
  Receive Date: 20210511
  Receipt Date: 20210511
  Transmission Date: 20210717
  Serious: Yes (Hospitalization, Other)
  Sender: FDA-Public Use
  Company Number: US-ROCHE-2820677

PATIENT
  Age: 73 Year
  Sex: Female
  Weight: 67.4 kg

DRUGS (3)
  1. ATEZOLIZUMAB. [Suspect]
     Active Substance: ATEZOLIZUMAB
     Indication: OVARIAN CANCER
     Dosage: DATE OF LAST DOSE: 22/MAR/2021?ON DAYS 1 AND 15
     Route: 042
     Dates: start: 20201016
  2. BEVACIZUMAB. [Suspect]
     Active Substance: BEVACIZUMAB
     Indication: OVARIAN CANCER
     Dosage: DATE OF LAST DOSE: 22/MAR/2021?ON DAYS 1 AND 15
     Route: 042
     Dates: start: 20201016
  3. LIPOSOMAL DOXORUBICIN [Suspect]
     Active Substance: DOXORUBICIN HYDROCHLORIDE
     Indication: OVARIAN CANCER
     Dosage: DATE OF LAST DOSE: 22/MAR/2021?ON DAY1
     Route: 042
     Dates: start: 20201016

REACTIONS (5)
  - Pyelonephritis acute [Not Recovered/Not Resolved]
  - Acute kidney injury [Not Recovered/Not Resolved]
  - Supraventricular tachycardia [Recovered/Resolved]
  - Stent malfunction [Not Recovered/Not Resolved]
  - Hydronephrosis [Not Recovered/Not Resolved]

NARRATIVE: CASE EVENT DATE: 20210322
